FAERS Safety Report 4312785-3 (Version None)
Quarter: 2004Q1

REPORT INFORMATION
  Report Type: 
  Country: None (occurrence: None)
  Receive Date: 20040304
  Receipt Date: 20040224
  Transmission Date: 20041129
  Serious: Yes (Other)
  Sender: FDA-Public Use
  Company Number: 2003159388CA

PATIENT
  Age: 25 Year
  Sex: Female

DRUGS (2)
  1. DEPO-PROVERA [Suspect]
     Indication: CONTRACEPTION
     Dosage: 150MG/3 MONTHS, FIRST INJECTION, INTRAMUSCULAR
     Route: 030
     Dates: start: 20030101, end: 20030101
  2. DEPO-PROVERA [Suspect]
     Indication: CONTRACEPTION
     Dosage: 140MG/3 MONTHS, LAST INJECTION, INTRAMUSCULAR
     Route: 030
     Dates: start: 20030401, end: 20030401

REACTIONS (5)
  - ABORTION SPONTANEOUS [None]
  - COMPLICATIONS OF MATERNAL EXPOSURE TO THERAPEUTIC DRUGS [None]
  - DRUG INEFFECTIVE [None]
  - MATERNAL DRUGS AFFECTING FOETUS [None]
  - UNINTENDED PREGNANCY [None]
